FAERS Safety Report 6874011-0 (Version None)
Quarter: 2010Q3

REPORT INFORMATION
  Report Type: 
  Country: None (occurrence: None)
  Receive Date: 20100721
  Receipt Date: 20100715
  Transmission Date: 20110219
  Serious: Yes (Death, Other)
  Sender: FDA-Public Use
  Company Number: 2010US002770

PATIENT

DRUGS (4)
  1. PROGRAF [Suspect]
     Indication: RENAL TRANSPLANT
  2. CAMPATH [Suspect]
     Indication: RENAL TRANSPLANT
     Dosage: 30 MG, TOTAL DOSE
  3. MYCOPHENOLATE MOFETIL [Concomitant]
  4. METHYLPREDNISOLONE [Concomitant]

REACTIONS (1)
  - KIDNEY TRANSPLANT REJECTION [None]
